FAERS Safety Report 10261529 (Version 3)
Quarter: 2018Q4

REPORT INFORMATION
  Report Type: Spontaneous
  Country: IT (occurrence: IT)
  Receive Date: 20140626
  Receipt Date: 20181214
  Transmission Date: 20190204
  Serious: Yes (Other)
  Sender: FDA-Public Use
  Company Number: IT-TEVA-489498ISR

PATIENT
  Sex: Female

DRUGS (4)
  1. IFNB-1B [Suspect]
     Active Substance: INTERFERON BETA-1B
     Route: 065
  2. GLATIRAMER ACETATE. [Suspect]
     Active Substance: GLATIRAMER ACETATE
     Dosage: THE SUSPECT MEDICATION WAS TAKEN BY THE FATHER
     Route: 065
  3. INTERFERON BETA-1A (IFNB-1A) [Suspect]
     Active Substance: INTERFERON BETA-1A
     Route: 065
  4. INTERFERON BETA-1A (IFNB-1A) [Suspect]
     Active Substance: INTERFERON BETA-1A
     Route: 065

REACTIONS (10)
  - Caesarean section [Unknown]
  - Pregnancy of partner [Unknown]
  - Premature separation of placenta [Unknown]
  - Infection [Unknown]
  - Maternal exposure during pregnancy [Unknown]
  - Eclampsia [Unknown]
  - Premature delivery [Unknown]
  - Abortion threatened [Unknown]
  - Abortion spontaneous [Unknown]
  - Pre-eclampsia [Unknown]
